FAERS Safety Report 10616741 (Version 1)
Quarter: 2014Q4

REPORT INFORMATION
  Report Type: Spontaneous
  Country: GB (occurrence: GB)
  Receive Date: 20141201
  Receipt Date: 20141201
  Transmission Date: 20150529
  Serious: Yes (Other)
  Sender: FDA-Public Use
  Company Number: GB-WATSON-2014-25518

PATIENT
  Age: 4 Year
  Sex: Male

DRUGS (1)
  1. VANCOMYCIN (UNKNOWN) [Suspect]
     Active Substance: VANCOMYCIN
     Indication: PRODUCT USED FOR UNKNOWN INDICATION
     Dosage: 15 MG, UNKNOWN
     Route: 065
     Dates: start: 20140710, end: 20140710

REACTIONS (4)
  - Vomiting [Unknown]
  - Angioedema [Unknown]
  - Cold sweat [Unknown]
  - Contraindicated drug administered [Unknown]

NARRATIVE: CASE EVENT DATE: 20140710
